FAERS Safety Report 25964453 (Version 2)
Quarter: 2025Q4

REPORT INFORMATION
  Report Type: Report from Study
  Country: KR (occurrence: KR)
  Receive Date: 20251027
  Receipt Date: 20251030
  Transmission Date: 20260117
  Serious: Yes (Other)
  Sender: GUERBET
  Company Number: KR-GUERBET / KOREA-KR-20250060

PATIENT

DRUGS (2)
  1. LIPIODOL [Suspect]
     Active Substance: ETHIODIZED OIL
     Indication: Transcatheter arterial chemoembolisation
     Dosage: 1:1 EMULSION OF CISPLATIN (DISSOLVED IN SALINE) AND LIPIODOL (IODIZED OIL) INFUSED WITH AN UNSPECIFI
     Route: 013
  2. CISPLATIN [Suspect]
     Active Substance: CISPLATIN
     Indication: Transcatheter arterial chemoembolisation
     Dosage: 1:1 EMULSION OF CISPLATIN (DISSOLVED IN SALINE) AND LIPIODOL (IODIZED OIL) INFUSED WITH AN UNSPECIFI
     Route: 013

REACTIONS (1)
  - Pleural effusion [Unknown]
